FAERS Safety Report 5240169-2 (Version None)
Quarter: 2007Q1

REPORT INFORMATION
  Report Type: 
  Country: None (occurrence: None)
  Receive Date: 20070216
  Receipt Date: 20070205
  Transmission Date: 20070707
  Serious: Yes (Hospitalization)
  Sender: FDA-Public Use
  Company Number: LV-PFIZER INC-2007012292

PATIENT
  Age: 43 Year
  Sex: Female
  Weight: 97 kg

DRUGS (2)
  1. NORVASC [Suspect]
     Indication: HYPERTENSION
     Route: 048
     Dates: start: 20050901, end: 20060901
  2. CONCOR [Concomitant]

REACTIONS (5)
  - ALOPECIA [None]
  - CHEST PAIN [None]
  - HALLUCINATION [None]
  - HYPERTENSION [None]
  - URINARY TRACT DISORDER [None]
